FAERS Safety Report 26147919 (Version 1)
Quarter: 2025Q4

REPORT INFORMATION
  Report Type: Spontaneous
  Country: US (occurrence: US)
  Receive Date: 20251212
  Receipt Date: 20251212
  Transmission Date: 20260119
  Serious: Yes (Hospitalization, Other)
  Sender: ALEMBIC
  Company Number: US-MLMSERVICE-20251121-PI722519-00162-1

PATIENT

DRUGS (10)
  1. HYDROCHLOROTHIAZIDE [Interacting]
     Active Substance: HYDROCHLOROTHIAZIDE
     Indication: Product used for unknown indication
     Route: 065
  2. FUROSEMIDE [Interacting]
     Active Substance: FUROSEMIDE
     Indication: Product used for unknown indication
     Dosage: DAYS OF LIFE (DOL) 15: ONE-TIME DOSE OF 1MG/KG DOSE OF FUROSEMIDE
     Route: 048
  3. FUROSEMIDE [Interacting]
     Active Substance: FUROSEMIDE
     Dosage: DAYS OF LIFE (DOL) 17: Q12HR, WEIGHT-BASED DOSING AT 1MG/KG/DOSE AND ON DAYS OF LIFE (DOL) 18: WEIGH
     Route: 048
  4. FUROSEMIDE [Interacting]
     Active Substance: FUROSEMIDE
     Dosage: DAYS OF LIFE (DOL) 23: ONE-TIME DOSE OF 2 MG/KG/DOSE. AND ON DAYS OF LIFE (DOL) 25: WEIGHT-ADJUSTED
     Route: 048
  5. FUROSEMIDE [Interacting]
     Active Substance: FUROSEMIDE
     Dosage: DAYS OF LIFE (DOL) 27: INCREASED FREQUENCY TO Q8HR AND ON WEIGHT-ADJUSTED INCREASE ON DAYS OF LIFE (
     Route: 048
  6. FUROSEMIDE [Interacting]
     Active Substance: FUROSEMIDE
     Dosage: DAYS OF LIFE (DOL) 42: INCREASED FREQUENCY TO Q6HR AND WEIGHT-ADJUSTED INCREASE ON DAYS OF LIFE (DOL
     Route: 048
  7. FUROSEMIDE [Interacting]
     Active Substance: FUROSEMIDE
     Dosage: DAYS OF LIFE (DOL) 60: WEIGHT-ADJUSTED INCREASE, DECREASED FREQUENCY TO Q8HR, DOSE INCREASED TO 3.5
     Route: 048
  8. FUROSEMIDE [Interacting]
     Active Substance: FUROSEMIDE
     Dosage: UNK
     Route: 042
  9. CAPTOPRIL [Interacting]
     Active Substance: CAPTOPRIL
     Indication: Product used for unknown indication
     Route: 065
  10. CHLOROTHIAZIDE [Interacting]
     Active Substance: CHLOROTHIAZIDE
     Indication: Product used for unknown indication
     Route: 065

REACTIONS (6)
  - Nephropathy toxic [Unknown]
  - Drug interaction [Unknown]
  - Hypotension [Unknown]
  - Electrolyte imbalance [Unknown]
  - Drug interaction [Unknown]
  - Drug interaction [Unknown]
